FAERS Safety Report 20382210 (Version 1)
Quarter: 2022Q1

REPORT INFORMATION
  Report Type: Spontaneous
  Country: US (occurrence: US)
  Receive Date: 20220127
  Receipt Date: 20220127
  Transmission Date: 20220424
  Serious: No
  Sender: FDA-Public Use
  Company Number: US-SA-SAC20220125000142

PATIENT
  Sex: Female

DRUGS (1)
  1. DUPIXENT [Suspect]
     Active Substance: DUPILUMAB
     Indication: Dermatitis atopic
     Dosage: 300 MG, QOW
     Route: 058
     Dates: start: 202110

REACTIONS (7)
  - Injection site discolouration [Unknown]
  - Injection site rash [Unknown]
  - Injection site eczema [Unknown]
  - Burning sensation [Unknown]
  - Feeling cold [Unknown]
  - COVID-19 [Unknown]
  - Eczema [Unknown]
